FAERS Safety Report 8334505-8 (Version None)
Quarter: 2012Q2

REPORT INFORMATION
  Report Type: 
  Country: None (occurrence: None)
  Receive Date: 20120503
  Receipt Date: 20120430
  Transmission Date: 20120825
  Serious: Yes (Other)
  Sender: FDA-Public Use
  Company Number: US-PFIZER INC-2012074970

PATIENT
  Sex: Male
  Weight: 74.83 kg

DRUGS (3)
  1. ZONEGRAN [Concomitant]
     Indication: EPILEPSY
     Dosage: 100 MG, DAILY
     Dates: start: 20070101
  2. DILANTIN [Suspect]
     Indication: CONVULSION
     Dosage: 500 MG, DAILY (5 CAPSULES OF 100 MG DAILY)
     Dates: start: 19970101
  3. DILANTIN [Suspect]
     Indication: EPILEPSY

REACTIONS (5)
  - GRAND MAL CONVULSION [None]
  - HYPERSENSITIVITY [None]
  - CONVULSION [None]
  - DRUG LEVEL CHANGED [None]
  - ELECTROENCEPHALOGRAM ABNORMAL [None]
